FAERS Safety Report 15489024 (Version 2)
Quarter: 2018Q4

REPORT INFORMATION
  Report Type: Spontaneous
  Country: JP (occurrence: JP)
  Receive Date: 20181011
  Receipt Date: 20181207
  Transmission Date: 20190205
  Serious: Yes (Hospitalization, Disabling)
  Sender: FDA-Public Use
  Company Number: JP-ASTRAZENECA-2018SF18814

PATIENT
  Age: 68 Year
  Sex: Male
  Weight: 49 kg

DRUGS (11)
  1. DENOTAS [Concomitant]
     Active Substance: CALCIUM CARBONATE\CHOLECALCIFEROL\MAGNESIUM CARBONATE
     Indication: METASTASES TO BONE
     Route: 048
  2. TAGRISSO [Suspect]
     Active Substance: OSIMERTINIB
     Indication: NON-SMALL CELL LUNG CANCER
     Route: 048
     Dates: start: 20171229, end: 20180308
  3. BEVACIZUMAB. [Suspect]
     Active Substance: BEVACIZUMAB
     Indication: NON-SMALL CELL LUNG CANCER
     Dosage: DOSE UNKNOWN
     Route: 041
     Dates: start: 20171228, end: 20180122
  4. AMITIZA [Concomitant]
     Active Substance: LUBIPROSTONE
     Indication: CONSTIPATION
     Route: 048
  5. GEBEN [Concomitant]
     Active Substance: SILVER SULFADIAZINE
     Indication: SEBORRHOEIC DERMATITIS
     Dosage: AS REQUIRED, DOSE UNKNOWN (OPTIMAL DOSE).
     Route: 062
  6. SENNOSIDE [Concomitant]
     Active Substance: SENNOSIDES
     Indication: CONSTIPATION
     Route: 048
  7. CELECOX [Concomitant]
     Active Substance: CELECOXIB
     Route: 048
  8. BARAMYCIN [Concomitant]
     Active Substance: BACITRACIN\NEOMYCIN SULFATE
     Indication: SEBORRHOEIC DERMATITIS
     Dosage: AS REQUIRED, DOSE UNKNOWN (OPTIMAL DOSE).
     Route: 062
  9. OMEPRAZOLE. [Concomitant]
     Active Substance: OMEPRAZOLE
     Indication: GASTRIC ULCER
     Dosage: ENTERIC COATING DRUG, 20MG DAILY
     Route: 048
  10. TERNELIN [Concomitant]
     Active Substance: TIZANIDINE
     Indication: BACK PAIN
     Route: 048
  11. HIRUDOID [Concomitant]
     Active Substance: GLYCOSAMINOGLYCANS
     Indication: SEBORRHOEIC DERMATITIS
     Dosage: AS REQUIRED, DOSE UNKNOWN (OPTIMAL DOSE).
     Route: 062

REACTIONS (3)
  - Skin ulcer [Recovering/Resolving]
  - Gait disturbance [Not Recovered/Not Resolved]
  - Cellulitis [Recovering/Resolving]

NARRATIVE: CASE EVENT DATE: 201801
